FAERS Safety Report 8371318-5 (Version None)
Quarter: 2012Q2

REPORT INFORMATION
  Report Type: 
  Country: None (occurrence: None)
  Receive Date: 20120517
  Receipt Date: 20120507
  Transmission Date: 20120825
  Serious: Yes (Hospitalization)
  Sender: FDA-Public Use
  Company Number: DSU-2012-03663

PATIENT
  Sex: Female

DRUGS (1)
  1. EVOXAC [Suspect]
     Indication: DRY MOUTH
     Dosage: 60 MG (30 MG, 2 IN 1 D), PER ORAL
     Route: 048

REACTIONS (1)
  - HAEMORRHAGIC STROKE [None]
